FAERS Safety Report 10404685 (Version 2)
Quarter: 2014Q3

REPORT INFORMATION
  Report Type: Spontaneous
  Country: US (occurrence: US)
  Receive Date: 20140824
  Receipt Date: 20140824
  Transmission Date: 20150326
  Serious: Yes (Hospitalization, Other)
  Sender: FDA-Public Use
  Company Number: US-009507513-2009SP043049

PATIENT
  Sex: Female
  Weight: 77.11 kg

DRUGS (3)
  1. [COMPOSITION UNSPECIFIED] [Suspect]
     Active Substance: UNSPECIFIED INGREDIENT
     Indication: PRODUCT USED FOR UNKNOWN INDICATION
  2. NUVARING [Suspect]
     Active Substance: ETHINYL ESTRADIOL\ETONOGESTREL
     Indication: CONTRACEPTION
     Dates: start: 20051128, end: 200612
  3. NAPROSYN [Concomitant]
     Active Substance: NAPROXEN
     Indication: PAIN
     Dosage: 500 MG, UNK
     Dates: start: 200612

REACTIONS (8)
  - Candida infection [Recovered/Resolved]
  - Pulmonary embolism [Recovering/Resolving]
  - Gastrooesophageal reflux disease [Unknown]
  - Deep vein thrombosis [Recovered/Resolved]
  - Ligament sprain [Unknown]
  - Cerebrovascular accident [Unknown]
  - Emotional distress [Unknown]
  - Contusion [Unknown]

NARRATIVE: CASE EVENT DATE: 20061024
